FAERS Safety Report 5717791-X (Version None)
Quarter: 2008Q2

REPORT INFORMATION
  Report Type: 
  Country: None (occurrence: None)
  Receive Date: 20080425
  Receipt Date: 20080418
  Transmission Date: 20081010
  Serious: Yes (Other)
  Sender: FDA-Public Use
  Company Number: US-ASTRAZENECA-2008UW08025

PATIENT
  Age: 79 Year
  Sex: Female
  Weight: 65.8 kg

DRUGS (3)
  1. ARIMIDEX [Suspect]
     Indication: BREAST CANCER
     Route: 048
  2. LEVOTHYROXINE SODIUM [Concomitant]
  3. NAPROSYN [Concomitant]

REACTIONS (1)
  - RECALL PHENOMENON [None]
